FAERS Safety Report 25267830 (Version 1)
Quarter: 2025Q2

REPORT INFORMATION
  Report Type: Spontaneous
  Country: TR (occurrence: TR)
  Receive Date: 20250505
  Receipt Date: 20250505
  Transmission Date: 20250716
  Serious: Yes (Hospitalization)
  Sender: Steriscience PTE
  Company Number: TR-STERISCIENCE B.V.-2025-ST-000839

PATIENT
  Age: 34 Year
  Sex: Male
  Weight: 97 kg

DRUGS (2)
  1. BUPIVACAINE [Suspect]
     Active Substance: BUPIVACAINE
     Indication: Spinal anaesthesia
     Route: 037
  2. MORPHINE [Suspect]
     Active Substance: MORPHINE
     Indication: Spinal anaesthesia
     Route: 037

REACTIONS (2)
  - Myoclonus [None]
  - Off label use [Unknown]
